FAERS Safety Report 19003961 (Version 1)
Quarter: 2021Q1

REPORT INFORMATION
  Report Type: Spontaneous
  Country: US (occurrence: US)
  Receive Date: 20210313
  Receipt Date: 20210313
  Transmission Date: 20210420
  Serious: No
  Sender: FDA-Public Use
  Company Number: NVSC2021US051636

PATIENT
  Sex: Female

DRUGS (2)
  1. GILENYA [Suspect]
     Active Substance: FINGOLIMOD HYDROCHLORIDE
     Dosage: 05. MG QD
     Route: 064
     Dates: start: 20200329, end: 20200504
  2. GILENYA [Suspect]
     Active Substance: FINGOLIMOD HYDROCHLORIDE
     Indication: FOETAL EXPOSURE DURING PREGNANCY
     Dosage: 0.5 MG QD
     Route: 064
     Dates: start: 20190102

REACTIONS (2)
  - Foetal exposure during pregnancy [Unknown]
  - Normal newborn [Unknown]
